FAERS Safety Report 24562647 (Version 2)
Quarter: 2024Q4

REPORT INFORMATION
  Report Type: Spontaneous
  Country: US (occurrence: US)
  Receive Date: 20241029
  Receipt Date: 20241114
  Transmission Date: 20250115
  Serious: Yes (Life-Threatening, Hospitalization)
  Sender: TEVA
  Company Number: US-TEVA-VS-3257514

PATIENT

DRUGS (1)
  1. FENTANYL [Suspect]
     Active Substance: FENTANYL
     Indication: Overdose
     Route: 065

REACTIONS (7)
  - Coma [Unknown]
  - Overdose [Unknown]
  - Brain herniation [Unknown]
  - Respiratory depression [Unknown]
  - Autonomic nervous system imbalance [Unknown]
  - Brain oedema [Unknown]
  - Rhabdomyolysis [Unknown]
